FAERS Safety Report 8460683-6 (Version None)
Quarter: 2012Q2

REPORT INFORMATION
  Report Type: 
  Country: None (occurrence: None)
  Receive Date: 20120622
  Receipt Date: 20120615
  Transmission Date: 20120825
  Serious: Yes (Other)
  Sender: FDA-Public Use
  Company Number: GXBR2012US001549

PATIENT
  Sex: Female

DRUGS (2)
  1. LYRICA [Suspect]
     Indication: DIABETIC NEUROPATHY
     Dosage: UNK MG, UNK
  2. CLONIDINE HCL [Suspect]
     Dosage: UNK MG, UNK

REACTIONS (6)
  - NAUSEA [None]
  - LOSS OF CONSCIOUSNESS [None]
  - HEADACHE [None]
  - ABDOMINAL PAIN [None]
  - PAIN [None]
  - PAIN IN EXTREMITY [None]
